FAERS Safety Report 18504506 (Version 1)
Quarter: 2020Q4

REPORT INFORMATION
  Report Type: Report from Study
  Country: MX (occurrence: MX)
  Receive Date: 20201114
  Receipt Date: 20201114
  Transmission Date: 20210114
  Serious: Yes (Other)
  Sender: FDA-Public Use
  Company Number: NVSC2020MX281719

PATIENT
  Age: 24 Year
  Sex: Female
  Weight: 69 kg

DRUGS (2)
  1. ENTRESTO [Suspect]
     Active Substance: SACUBITRIL\VALSARTAN
     Indication: CARDIAC FAILURE
     Dosage: 1 DF (100MG), QD (STARTED 1 YEAR AND HALF YEAR AGO)
     Route: 048
     Dates: end: 20201013
  2. ENTRESTO [Suspect]
     Active Substance: SACUBITRIL\VALSARTAN
     Dosage: 1 DF (200MG), QD
     Route: 048
     Dates: start: 20201013

REACTIONS (4)
  - Systemic lupus erythematosus [Recovered/Resolved]
  - Stomatitis [Recovered/Resolved]
  - Speech disorder [Recovered/Resolved]
  - Product prescribing error [Unknown]

NARRATIVE: CASE EVENT DATE: 20201002
